FAERS Safety Report 20695762 (Version 2)
Quarter: 2022Q2

REPORT INFORMATION
  Report Type: Spontaneous
  Country: JP (occurrence: JP)
  Receive Date: 20220411
  Receipt Date: 20220606
  Transmission Date: 20220720
  Serious: Yes (Hospitalization)
  Sender: FDA-Public Use
  Company Number: JP-ELI_LILLY_AND_COMPANY-JP202204000682AA

PATIENT
  Age: 87 Year
  Sex: Male
  Weight: 48 kg

DRUGS (8)
  1. HUMALOG [Suspect]
     Active Substance: INSULIN LISPRO
     Indication: Fulminant type 1 diabetes mellitus
     Dosage: 21 INTERNATIONAL UNIT, DAILY
     Route: 058
  2. BAQSIMI [Suspect]
     Active Substance: GLUCAGON
     Indication: Hypoglycaemia
     Dosage: 3 MG, SINGLE
     Route: 045
     Dates: start: 20220318
  3. TRESIBA [Suspect]
     Active Substance: INSULIN DEGLUDEC
     Indication: Fulminant type 1 diabetes mellitus
     Dosage: 8 INTERNATIONAL UNIT, EACH EVENING
     Route: 058
     Dates: end: 20220317
  4. TRESIBA [Suspect]
     Active Substance: INSULIN DEGLUDEC
     Dosage: 9 INTERNATIONAL UNIT, EACH EVENING
     Route: 058
     Dates: start: 20220318
  5. CARVEDILOL [Concomitant]
     Active Substance: CARVEDILOL
     Indication: Hypertension
     Dosage: 10 MG, DAILY
     Route: 048
  6. RABEPRAZOLE SODIUM [Concomitant]
     Active Substance: RABEPRAZOLE SODIUM
     Indication: Dyslipidaemia
     Dosage: 10 MG, DAILY
     Route: 048
  7. ASPIRIN [Concomitant]
     Active Substance: ASPIRIN
     Indication: Cerebral infarction
     Dosage: 100 MG, DAILY
     Route: 048
  8. HERBESSER [Concomitant]
     Active Substance: DILTIAZEM HYDROCHLORIDE
     Indication: Hypertension
     Dosage: 100 MG, DAILY
     Route: 048

REACTIONS (5)
  - Hypoglycaemic unconsciousness [Recovered/Resolved]
  - Hypoglycaemic unconsciousness [Recovered/Resolved]
  - Rheumatic disorder [Unknown]
  - Blood glucose fluctuation [Unknown]
  - Incorrect dose administered [Unknown]

NARRATIVE: CASE EVENT DATE: 20220301
